FAERS Safety Report 9744435 (Version 3)
Quarter: 2014Q1

REPORT INFORMATION
  Report Type: Spontaneous
  Country: US (occurrence: US)
  Receive Date: 20131210
  Receipt Date: 20140319
  Transmission Date: 20141002
  Serious: Yes (Hospitalization)
  Sender: FDA-Public Use
  Company Number: US-B.I. PHARMACEUTICALS,INC./RIDGEFIELD-2013-BI-40783BP

PATIENT
  Sex: Male
  Weight: 88.45 kg

DRUGS (13)
  1. PRADAXA [Suspect]
     Indication: ATRIAL FIBRILLATION
     Route: 065
     Dates: start: 20110620, end: 20110901
  2. FLOMAX [Concomitant]
     Route: 065
     Dates: start: 1994
  3. LIPITOR [Concomitant]
     Route: 065
     Dates: start: 1994
  4. LISINOPRIL [Concomitant]
     Route: 065
     Dates: start: 1994
  5. METOPROLOL [Concomitant]
     Route: 065
     Dates: start: 1994
  6. ASPIRIN [Concomitant]
     Route: 065
  7. CARBIDOPA-LEVODOPA [Concomitant]
     Route: 065
  8. DIGOXIN [Concomitant]
     Route: 065
  9. EXELON PATCH [Concomitant]
     Route: 065
  10. HUMULOS [Concomitant]
     Route: 065
  11. LITNOSLY CERIN [Concomitant]
     Route: 065
  12. VESL CARE [Concomitant]
     Route: 065
  13. DAPSON [Concomitant]
     Route: 065

REACTIONS (3)
  - Gastrointestinal haemorrhage [Unknown]
  - Anaemia [Unknown]
  - Respiratory failure [Unknown]
